FAERS Safety Report 18269637 (Version 4)
Quarter: 2020Q4

REPORT INFORMATION
  Report Type: Spontaneous
  Country: US (occurrence: US)
  Receive Date: 20200916
  Receipt Date: 20201005
  Transmission Date: 20210113
  Serious: No
  Sender: FDA-Public Use
  Company Number: US-SA-2020SA248532

PATIENT

DRUGS (2)
  1. CABLIVI [Suspect]
     Active Substance: CAPLACIZUMAB-YHDP
     Indication: THROMBOTIC MICROANGIOPATHY
     Dosage: 11 MG, QD
     Route: 058
     Dates: start: 20200815
  2. PREDNISONE. [Suspect]
     Active Substance: PREDNISONE

REACTIONS (6)
  - Blood pressure abnormal [Unknown]
  - Weight increased [Unknown]
  - Insomnia [Unknown]
  - Erythema [Unknown]
  - Blood lactate dehydrogenase increased [Unknown]
  - Anxiety [Unknown]

NARRATIVE: CASE EVENT DATE: 2020
